FAERS Safety Report 11203740 (Version 1)
Quarter: 2015Q2

REPORT INFORMATION
  Report Type: Report from Study
  Country: US (occurrence: US)
  Receive Date: 20150619
  Receipt Date: 20150619
  Transmission Date: 20150821
  Serious: Yes (Death)
  Sender: FDA-Public Use
  Company Number: US-SA-2015SA088861

PATIENT

DRUGS (4)
  1. FLUDARABINE PHOSPHATE. [Suspect]
     Active Substance: FLUDARABINE PHOSPHATE
     Indication: BONE MARROW CONDITIONING REGIMEN
     Dosage: -8 TO-4 DAYS OR -7 TO-3 DAYS
     Route: 065
  2. ALEMTUZUMAB [Suspect]
     Active Substance: ALEMTUZUMAB
     Indication: BONE MARROW CONDITIONING REGIMEN
     Dosage: ALEMTUZUMAB SCHEDULE?DAY -23,-22,-21(DISTAL)?DAY -12,-11,-9,-8(PROXIMAL)?DAY -14 (INTERMEDIATE)
     Route: 065
  3. MELPHALAN [Suspect]
     Active Substance: MELPHALAN
     Indication: BONE MARROW CONDITIONING REGIMEN
     Dosage: -3 OR -2 DAY
     Route: 065
  4. G-CSF [Concomitant]
     Active Substance: GRANULOCYTE COLONY-STIMULATING FACTOR NOS

REACTIONS (2)
  - Multi-organ failure [Fatal]
  - Mucosal inflammation [Fatal]
